FAERS Safety Report 5257641-1 (Version None)
Quarter: 2007Q1

REPORT INFORMATION
  Report Type: 
  Country: None (occurrence: None)
  Receive Date: 20070307
  Receipt Date: 20070223
  Transmission Date: 20070707
  Serious: Yes (Other)
  Sender: FDA-Public Use
  Company Number: PHMT2007CA00670

PATIENT
  Age: 30 Year
  Sex: Male
  Weight: 76 kg

DRUGS (4)
  1. CLOZARIL [Suspect]
     Indication: SCHIZOPHRENIA
     Dosage: 500 MG DAILY
     Route: 048
     Dates: start: 20051228, end: 20070223
  2. CLOZARIL [Suspect]
     Dosage: 500 MG DAILY
     Route: 048
  3. CLONAZEPAM [Concomitant]
     Dosage: 0.5 MG, QAM
     Route: 048
  4. ATROPINE [Concomitant]
     Indication: SALIVARY HYPERSECRETION
     Dosage: 1 GTT, QHS
     Route: 060

REACTIONS (5)
  - CONFUSIONAL STATE [None]
  - DYSARTHRIA [None]
  - SALIVARY HYPERSECRETION [None]
  - SEDATION [None]
  - SLEEP WALKING [None]
